FAERS Safety Report 6423901-1 (Version None)
Quarter: 2009Q4

REPORT INFORMATION
  Report Type: 
  Country: None (occurrence: None)
  Receive Date: 20091102
  Receipt Date: 20091019
  Transmission Date: 20100525
  Serious: Yes (Hospitalization, Other)
  Sender: FDA-Public Use
  Company Number: PHHY2009BR45506

PATIENT
  Sex: Female

DRUGS (1)
  1. DIOVAN AMLO FIX [Suspect]
     Indication: HYPERTENSION
     Dosage: 320/5 MG, DAILY
     Route: 048
     Dates: end: 20090918

REACTIONS (7)
  - BONE OPERATION [None]
  - CEREBROVASCULAR ACCIDENT [None]
  - EYE DISORDER [None]
  - FOOT FRACTURE [None]
  - HEMIPLEGIA [None]
  - ROAD TRAFFIC ACCIDENT [None]
  - VISUAL ACUITY REDUCED [None]
